FAERS Safety Report 16736706 (Version 1)
Quarter: 2019Q3

REPORT INFORMATION
  Report Type: Spontaneous
  Country: DE (occurrence: DE)
  Receive Date: 20190823
  Receipt Date: 20190823
  Transmission Date: 20191005
  Serious: Yes (Other)
  Sender: FDA-Public Use
  Company Number: DE-JNJFOC-20190827075

PATIENT
  Age: 65 Year
  Sex: Male

DRUGS (2)
  1. GINGKOMIN [Concomitant]
     Active Substance: GINKGO
  2. RIVAROXABAN [Suspect]
     Active Substance: RIVAROXABAN
     Indication: DEEP VEIN THROMBOSIS
     Dosage: 10 MG, QD
     Route: 048
     Dates: start: 2017

REACTIONS (4)
  - Pain [Unknown]
  - Skin neoplasm excision [Unknown]
  - Impaired healing [Unknown]
  - Wound haemorrhage [Unknown]
